FAERS Safety Report 24747824 (Version 1)
Quarter: 2024Q4

REPORT INFORMATION
  Report Type: Spontaneous
  Country: US (occurrence: None)
  Receive Date: 20241218
  Receipt Date: 20241218
  Transmission Date: 20250114
  Serious: Yes (Hospitalization)
  Sender: Public
  Company Number: None

PATIENT
  Age: 82 Year
  Sex: Female
  Weight: 48.2 kg

DRUGS (3)
  1. FLUOROURACIL [Suspect]
     Active Substance: FLUOROURACIL
     Dates: end: 20210525
  2. LEUCOVORIN CALCIUM [Suspect]
     Active Substance: LEUCOVORIN CALCIUM
     Dates: end: 20210525
  3. ELOXATIN [Suspect]
     Active Substance: OXALIPLATIN
     Dates: end: 20210525

REACTIONS (3)
  - Pneumonia [None]
  - Myocardial infarction [None]
  - Hypoxia [None]

NARRATIVE: CASE EVENT DATE: 20210605
